FAERS Safety Report 4539156-9 (Version None)
Quarter: 2004Q4

REPORT INFORMATION
  Report Type: 
  Country: None (occurrence: None)
  Receive Date: 20041223
  Receipt Date: 20041028
  Transmission Date: 20050328
  Serious: No
  Sender: FDA-Public Use
  Company Number: US-JNJFOC-20041100251

PATIENT
  Age: 24 Year
  Sex: Female
  Weight: 72.1219 kg

DRUGS (4)
  1. ORTHO EVRA [Suspect]
     Indication: CONTRACEPTION
     Dosage: 1 DOSE(S), 3 IN 4 WEEK, TRANSDERMAL
     Route: 062
     Dates: start: 20040401
  2. MULTIVITAMIN [Concomitant]
  3. MSM (METHYLSULFONAL) [Concomitant]
  4. GINGKO BILOBA (GINGKO BILOBA) [Concomitant]

REACTIONS (3)
  - DYSPNOEA [None]
  - FATIGUE [None]
  - PALPITATIONS [None]
